FAERS Safety Report 5123381-2 (Version None)
Quarter: 2006Q4

REPORT INFORMATION
  Report Type: 
  Country: None (occurrence: None)
  Receive Date: 20061005
  Receipt Date: 20060921
  Transmission Date: 20070319
  Serious: Yes (Hospitalization)
  Sender: FDA-Public Use
  Company Number: 227892

PATIENT
  Age: 55 Year
  Sex: Male
  Weight: 91 kg

DRUGS (3)
  1. AVASTIN [Suspect]
     Indication: COLORECTAL CANCER METASTATIC
     Dosage: 700 MG, UNK, INTRAVENOUS
     Route: 042
     Dates: start: 20060621, end: 20060621
  2. CAPECITABINE (CAPECITABINE) [Suspect]
     Indication: COLORECTAL CANCER METASTATIC
     Dosage: 2000 MG, UNK, ORAL
     Route: 048
     Dates: start: 20060621, end: 20060705
  3. IRINOTECAN HCL [Suspect]
     Indication: COLORECTAL CANCER METASTATIC
     Dosage: UNK MG, Q3W, INTRAVENOUS
     Route: 042
     Dates: start: 20060621

REACTIONS (5)
  - CARDIAC MURMUR [None]
  - DEEP VEIN THROMBOSIS [None]
  - PLEURISY [None]
  - PULMONARY EMBOLISM [None]
  - TACHYCARDIA [None]
